FAERS Safety Report 24035962 (Version 2)
Quarter: 2024Q4

REPORT INFORMATION
  Report Type: Spontaneous
  Country: IT (occurrence: IT)
  Receive Date: 20240701
  Receipt Date: 20241018
  Transmission Date: 20250115
  Serious: Yes (Hospitalization)
  Sender: VERTEX
  Company Number: IT-VERTEX PHARMACEUTICALS-2024-010636

PATIENT

DRUGS (5)
  1. ELEXACAFTOR\IVACAFTOR\TEZACAFTOR [Suspect]
     Active Substance: ELEXACAFTOR\IVACAFTOR\TEZACAFTOR
     Indication: Cystic fibrosis
     Dosage: FOR CHILDREN WEIGHING LESS THAN 30 KG: ELEXA 100 MG QD, TEZA 50 MG QD, IVA 75 MG QD
     Route: 048
  2. ELEXACAFTOR\IVACAFTOR\TEZACAFTOR [Suspect]
     Active Substance: ELEXACAFTOR\IVACAFTOR\TEZACAFTOR
     Dosage: FOR CHILDREN WEIGHING 30 KG OR MORE: ELEXA 200 MG QD, TEZA 100 MG QD, IVA 150 MG QD
     Route: 048
  3. KALYDECO [Suspect]
     Active Substance: IVACAFTOR
     Indication: Cystic fibrosis
     Dosage: FOR CHILDREN WEIGHING LESS THAN 30 KG: IVACAFTOR 75 MG; QD
     Route: 048
  4. KALYDECO [Suspect]
     Active Substance: IVACAFTOR
     Dosage: FOR CHILDREN WEIGHING 30 KG OR MORE: IVACAFTOR 150 MG; QD
     Route: 048
  5. KALYDECO [Suspect]
     Active Substance: IVACAFTOR
     Dosage: REDUCED DOSE (HALF DOSE FOR 1 MONTH)
     Route: 048

REACTIONS (8)
  - Headache [Unknown]
  - Alanine aminotransferase increased [Recovering/Resolving]
  - Rash [Unknown]
  - Infective pulmonary exacerbation of cystic fibrosis [Unknown]
  - Gastroenteritis [Unknown]
  - Otitis media acute [Unknown]
  - Cough [Unknown]
  - Pruritus [Unknown]
